FAERS Safety Report 10990475 (Version 37)
Quarter: 2018Q4

REPORT INFORMATION
  Report Type: Report from Study
  Country: CA (occurrence: CA)
  Receive Date: 20150406
  Receipt Date: 20181212
  Transmission Date: 20190204
  Serious: Yes (Other)
  Sender: FDA-Public Use
  Company Number: CA-ROCHE-1551832

PATIENT
  Age: 57 Year
  Sex: Male
  Weight: 70 kg

DRUGS (17)
  1. ACTEMRA [Suspect]
     Active Substance: TOCILIZUMAB
     Route: 042
     Dates: start: 20160226
  2. ACTEMRA [Suspect]
     Active Substance: TOCILIZUMAB
     Route: 042
     Dates: end: 20180601
  3. SULFASALAZINE. [Concomitant]
     Active Substance: SULFASALAZINE
  4. ACTEMRA [Suspect]
     Active Substance: TOCILIZUMAB
     Route: 042
     Dates: start: 20151009
  5. METHOTREXATE. [Concomitant]
     Active Substance: METHOTREXATE
  6. ACTEMRA [Suspect]
     Active Substance: TOCILIZUMAB
     Route: 042
  7. CELEBREX [Concomitant]
     Active Substance: CELECOXIB
  8. CORTISONE [Concomitant]
     Active Substance: CORTISONE\HYDROCORTISONE
     Route: 065
     Dates: start: 20160120
  9. ACTEMRA [Suspect]
     Active Substance: TOCILIZUMAB
     Route: 042
     Dates: start: 20150603
  10. FOLIC ACID. [Concomitant]
     Active Substance: FOLIC ACID
  11. CORTISONE [Concomitant]
     Active Substance: CORTISONE\HYDROCORTISONE
     Route: 065
     Dates: start: 20151103
  12. ACTEMRA [Suspect]
     Active Substance: TOCILIZUMAB
     Indication: RHEUMATOID ARTHRITIS
     Route: 042
     Dates: start: 20150312, end: 20180820
  13. ACTEMRA [Suspect]
     Active Substance: TOCILIZUMAB
     Route: 042
     Dates: start: 20150506
  14. ACTEMRA [Suspect]
     Active Substance: TOCILIZUMAB
     Route: 042
     Dates: start: 20150630
  15. ACTEMRA [Suspect]
     Active Substance: TOCILIZUMAB
     Route: 042
     Dates: start: 20150729
  16. HYDROXYCHLOROQUINE [Concomitant]
     Active Substance: HYDROXYCHLOROQUINE
  17. ELTROXIN [Concomitant]
     Active Substance: LEVOTHYROXINE

REACTIONS (35)
  - Non-cardiac chest pain [Unknown]
  - Weight increased [Unknown]
  - Pain [Not Recovered/Not Resolved]
  - Heart rate decreased [Unknown]
  - Insomnia [Unknown]
  - Labyrinthitis [Recovered/Resolved]
  - Vomiting [Recovered/Resolved]
  - Pyrexia [Recovered/Resolved]
  - Bladder neoplasm [Unknown]
  - Weight fluctuation [Unknown]
  - Musculoskeletal pain [Not Recovered/Not Resolved]
  - Infusion site bruising [Not Recovered/Not Resolved]
  - Neoplasm malignant [Unknown]
  - Pain [Recovered/Resolved]
  - Musculoskeletal disorder [Unknown]
  - Bladder prolapse [Unknown]
  - Injection site pain [Recovered/Resolved]
  - Rheumatoid arthritis [Unknown]
  - Hypoaesthesia [Recovered/Resolved]
  - Body temperature decreased [Unknown]
  - Oxygen saturation decreased [Unknown]
  - Hypotension [Unknown]
  - Swelling [Unknown]
  - Drug ineffective [Unknown]
  - Dizziness [Recovered/Resolved]
  - Nasopharyngitis [Not Recovered/Not Resolved]
  - Heart rate decreased [Unknown]
  - Oxygen saturation decreased [Unknown]
  - Weight decreased [Unknown]
  - Periarthritis [Unknown]
  - Blood pressure fluctuation [Unknown]
  - Blood urine present [Unknown]
  - Arthralgia [Not Recovered/Not Resolved]
  - Pain in extremity [Not Recovered/Not Resolved]
  - Chromaturia [Recovering/Resolving]

NARRATIVE: CASE EVENT DATE: 20150312
